FAERS Safety Report 23561258 (Version 1)
Quarter: 2024Q1

REPORT INFORMATION
  Report Type: Spontaneous
  Country: US (occurrence: US)
  Receive Date: 20240224
  Receipt Date: 20240224
  Transmission Date: 20240410
  Serious: Yes (Other)
  Sender: FDA-Public Use
  Company Number: US-AMGEN-USASP2024034206

PATIENT
  Age: 46 Year
  Sex: Female

DRUGS (2)
  1. OTEZLA [Suspect]
     Active Substance: APREMILAST
     Indication: Product used for unknown indication
     Dosage: UNK
     Route: 065
     Dates: start: 20231130, end: 20231207
  2. OTEZLA [Suspect]
     Active Substance: APREMILAST
     Dosage: TOOK THREE 15MG DOSES
     Route: 065
     Dates: start: 20240105

REACTIONS (3)
  - Basal ganglia infarction [Recovered/Resolved]
  - Cerebral artery stenosis [Recovered/Resolved]
  - Wrong technique in product usage process [Unknown]

NARRATIVE: CASE EVENT DATE: 20230101
